FAERS Safety Report 25503665 (Version 3)
Quarter: 2025Q3

REPORT INFORMATION
  Report Type: Report from Study
  Country: US (occurrence: US)
  Receive Date: 20250702
  Receipt Date: 20250821
  Transmission Date: 20251021
  Serious: Yes (Hospitalization, Other)
  Sender: ABBVIE
  Company Number: US-ABBVIE-6351008

PATIENT
  Age: 62 Year
  Sex: Male
  Weight: 61.234 kg

DRUGS (7)
  1. HUMIRA [Suspect]
     Active Substance: ADALIMUMAB
     Indication: Psoriatic arthropathy
     Dosage: HUMIRA CITRATE FREE PEN, FORM STRENGTH: 40 MILLIGRAM, LAST ADMIN DATE: 2023, DOSE FORM: SOLUTION ...
     Route: 058
     Dates: start: 20230731
  2. HUMIRA [Suspect]
     Active Substance: ADALIMUMAB
     Dosage: HUMIRA CITRATE FREE PEN, FORM STRENGTH: 40 MILLIGRAM, DOSE FORM: SOLUTION FOR INJECTION IN PRE-FI...
     Route: 058
     Dates: start: 20230801
  3. MYRBETRIQ [Concomitant]
     Active Substance: MIRABEGRON
     Indication: Bladder disorder
  4. FENOFIBRATE [Concomitant]
     Active Substance: FENOFIBRATE
     Indication: Blood cholesterol abnormal
  5. VITAMIN D2 [Concomitant]
     Active Substance: ERGOCALCIFEROL
     Indication: Vitamin D deficiency
  6. ESTRADIOL [Concomitant]
     Active Substance: ESTRADIOL
     Indication: Hormone therapy
  7. VITAMIN B12 [Concomitant]
     Active Substance: CYANOCOBALAMIN
     Indication: Vitamin B12 deficiency

REACTIONS (4)
  - Supraventricular tachycardia [Recovered/Resolved]
  - Vestibular disorder [Recovering/Resolving]
  - Tinnitus [Not Recovered/Not Resolved]
  - Supraventricular tachycardia [Recovered/Resolved]

NARRATIVE: CASE EVENT DATE: 20230801
